FAERS Safety Report 8348056-8 (Version None)
Quarter: 2012Q2

REPORT INFORMATION
  Report Type: 
  Country: None (occurrence: None)
  Receive Date: 20120509
  Receipt Date: 20120424
  Transmission Date: 20120825
  Serious: Yes (Other)
  Sender: FDA-Public Use
  Company Number: PL-WATSON-2012-07795

PATIENT
  Age: 8 Year
  Sex: Female

DRUGS (3)
  1. SULFASALAZINE [Suspect]
     Indication: PROCTITIS
     Dosage: UNK
     Route: 065
  2. MESALAMINE [Suspect]
     Indication: PROCTITIS
     Dosage: UNK
     Route: 065
  3. VERMOX [Suspect]
     Indication: ASCARIASIS
     Dosage: UNK
     Route: 065

REACTIONS (2)
  - CONDITION AGGRAVATED [None]
  - EOSINOPHILIC COLITIS [None]
